FAERS Safety Report 11118212 (Version 1)
Quarter: 2015Q2

REPORT INFORMATION
  Report Type: Spontaneous
  Country: GB (occurrence: GB)
  Receive Date: 20150518
  Receipt Date: 20150518
  Transmission Date: 20150821
  Serious: Yes (Hospitalization)
  Sender: FDA-Public Use
  Company Number: GB-JNJFOC-20150321702

PATIENT
  Age: 24 Year
  Sex: Male

DRUGS (2)
  1. REGAINE EXTRA STRENGTH-MENS [Suspect]
     Active Substance: MINOXIDIL
     Indication: ALOPECIA
     Route: 065
     Dates: start: 20150219, end: 20150219
  2. REGAINE EXTRA STRENGTH-MENS [Suspect]
     Active Substance: MINOXIDIL
     Route: 065

REACTIONS (24)
  - Visual acuity reduced [Not Recovered/Not Resolved]
  - Ear discomfort [Not Recovered/Not Resolved]
  - Back pain [Not Recovered/Not Resolved]
  - Palpitations [Not Recovered/Not Resolved]
  - Erectile dysfunction [Not Recovered/Not Resolved]
  - Tremor [Not Recovered/Not Resolved]
  - Headache [Not Recovered/Not Resolved]
  - Hallucination [Not Recovered/Not Resolved]
  - Expired product administered [Unknown]
  - Malaise [Not Recovered/Not Resolved]
  - Sensation of blood flow [Not Recovered/Not Resolved]
  - Product formulation issue [Unknown]
  - Penis disorder [Not Recovered/Not Resolved]
  - Feeling of body temperature change [Not Recovered/Not Resolved]
  - Viral infection [Not Recovered/Not Resolved]
  - Musculoskeletal stiffness [Not Recovered/Not Resolved]
  - Muscle fatigue [Not Recovered/Not Resolved]
  - Vitreous floaters [Not Recovered/Not Resolved]
  - Mental status changes [Not Recovered/Not Resolved]
  - Visual impairment [Not Recovered/Not Resolved]
  - Dyskinesia [Not Recovered/Not Resolved]
  - Pyrexia [Not Recovered/Not Resolved]
  - Feeling abnormal [Not Recovered/Not Resolved]
  - Tinnitus [Not Recovered/Not Resolved]

NARRATIVE: CASE EVENT DATE: 20150219
